APPROVED DRUG PRODUCT: CLEOCIN PHOSPHATE IN DEXTROSE 5% IN PLASTIC CONTAINER
Active Ingredient: CLINDAMYCIN PHOSPHATE
Strength: EQ 12MG BASE/ML **Federal Register determination that product was not discontinued or withdrawn for safety or effectiveness reasons**
Dosage Form/Route: INJECTABLE;INJECTION
Application: N050639 | Product #002
Applicant: PFIZER INC
Approved: Aug 30, 1989 | RLD: Yes | RS: No | Type: DISCN